FAERS Safety Report 12666615 (Version 2)
Quarter: 2016Q3

REPORT INFORMATION
  Report Type: Spontaneous
  Country: US (occurrence: US)
  Receive Date: 20160819
  Receipt Date: 20160824
  Transmission Date: 20161109
  Serious: Yes (Hospitalization)
  Sender: FDA-Public Use
  Company Number: US-HORIZON-ACT-0191-2016

PATIENT
  Age: 27 Year
  Sex: Male

DRUGS (1)
  1. ACTIMMUNE [Suspect]
     Active Substance: INTERFERON GAMMA-1B
     Indication: CHRONIC GRANULOMATOUS DISEASE
     Dosage: 100 ?G TIW
     Route: 058
     Dates: start: 201310

REACTIONS (2)
  - Fungal infection [Recovering/Resolving]
  - Pneumonectomy [Recovering/Resolving]

NARRATIVE: CASE EVENT DATE: 20160804
